FAERS Safety Report 6830452-9 (Version None)
Quarter: 2010Q3

REPORT INFORMATION
  Report Type: 
  Country: None (occurrence: None)
  Receive Date: 20100712
  Receipt Date: 20100701
  Transmission Date: 20110219
  Serious: No
  Sender: FDA-Public Use
  Company Number: US-BIOGENIDEC-2010BI022753

PATIENT
  Age: 33 Year
  Sex: Female

DRUGS (2)
  1. TYSABRI [Suspect]
     Indication: MULTIPLE SCLEROSIS
     Route: 042
     Dates: start: 20080315, end: 20090216
  2. TYSABRI [Suspect]
     Route: 042
     Dates: start: 20100315

REACTIONS (1)
  - MULTIPLE SCLEROSIS RELAPSE [None]
